FAERS Safety Report 6523054-5 (Version None)
Quarter: 2009Q4

REPORT INFORMATION
  Report Type: 
  Country: None (occurrence: None)
  Receive Date: 20091222
  Receipt Date: 20091211
  Transmission Date: 20100525
  Serious: Yes (Hospitalization)
  Sender: FDA-Public Use
  Company Number: 090354

PATIENT
  Age: 50 Year
  Sex: Female
  Weight: 77.1115 kg

DRUGS (4)
  1. NULYTELY [Suspect]
     Indication: COLONOSCOPY
     Dosage: ~3.5L, 1X, PO
     Route: 048
     Dates: start: 20091201
  2. DULCOLAX [Suspect]
     Indication: COLONOSCOPY
     Dosage: 20 MG, 1X, PO
     Route: 048
     Dates: start: 20091201
  3. REGLAN [Concomitant]
  4. ALDACTONE [Concomitant]

REACTIONS (9)
  - ABDOMINAL DISTENSION [None]
  - ABNORMAL WEIGHT GAIN [None]
  - BLOOD PRESSURE INCREASED [None]
  - CHEST PAIN [None]
  - DIARRHOEA [None]
  - DYSPEPSIA [None]
  - FLUID RETENTION [None]
  - NAUSEA [None]
  - SKIN DISORDER [None]
